FAERS Safety Report 8763205 (Version 3)
Quarter: 2013Q4

REPORT INFORMATION
  Report Type: Spontaneous
  Country: IE (occurrence: IE)
  Receive Date: 20120831
  Receipt Date: 20131107
  Transmission Date: 20140711
  Serious: No
  Sender: FDA-Public Use
  Company Number: IE-JNJFOC-20120811130

PATIENT
  Sex: 0

DRUGS (1)
  1. DUROGESIC DTRANS [Suspect]
     Indication: PRODUCT USED FOR UNKNOWN INDICATION
     Route: 062
     Dates: start: 2012

REACTIONS (2)
  - Wrong technique in drug usage process [Unknown]
  - Product quality issue [Unknown]
